FAERS Safety Report 15090578 (Version 1)
Quarter: 2018Q2

REPORT INFORMATION
  Report Type: Spontaneous
  Country: US (occurrence: US)
  Receive Date: 20180629
  Receipt Date: 20180629
  Transmission Date: 20180711
  Serious: No
  Sender: FDA-Public Use
  Company Number: US-PFIZER INC-2018264406

PATIENT
  Age: 42 Year
  Sex: Male

DRUGS (1)
  1. DEPO-TESTOSTERONE [Suspect]
     Active Substance: TESTOSTERONE CYPIONATE
     Indication: SEXUAL DYSFUNCTION
     Dosage: UNK

REACTIONS (2)
  - Haematocrit increased [Unknown]
  - Product use in unapproved indication [Unknown]
